FAERS Safety Report 6156842-8 (Version None)
Quarter: 2009Q2

REPORT INFORMATION
  Report Type: 
  Country: None (occurrence: None)
  Receive Date: 20090416
  Receipt Date: 20090406
  Transmission Date: 20091009
  Serious: Yes (Other)
  Sender: FDA-Public Use
  Company Number: US-ELI_LILLY_AND_COMPANY-US200903004543

PATIENT
  Sex: Male

DRUGS (4)
  1. STRATTERA [Suspect]
     Indication: ATTENTION DEFICIT/HYPERACTIVITY DISORDER
     Dosage: 25 MG, UNKNOWN
     Route: 065
     Dates: start: 20080807
  2. STRATTERA [Suspect]
     Dosage: 40 MG, UNKNOWN
     Route: 065
     Dates: start: 20080814, end: 20080821
  3. STRATTERA [Suspect]
     Dosage: 80 MG, UNKNOWN
     Route: 065
  4. CELEXA [Concomitant]
     Indication: ANXIETY
     Dosage: 15 MG, UNKNOWN
     Route: 065
     Dates: start: 20080801, end: 20090201

REACTIONS (2)
  - ALANINE AMINOTRANSFERASE INCREASED [None]
  - ASPARTATE AMINOTRANSFERASE INCREASED [None]
